FAERS Safety Report 6655284-6 (Version None)
Quarter: 2010Q1

REPORT INFORMATION
  Report Type: 
  Country: None (occurrence: None)
  Receive Date: 20100329
  Receipt Date: 20100323
  Transmission Date: 20100710
  Serious: Yes (Death, Hospitalization, Other)
  Sender: FDA-Public Use
  Company Number: TW-ROXANE LABORATORIES, INC.-2010-RO-00320RO

PATIENT
  Age: 52 Year
  Sex: Male

DRUGS (11)
  1. FUROSEMIDE [Suspect]
  2. PREDNISOLONE [Suspect]
     Indication: IMMUNOSUPPRESSANT DRUG THERAPY
     Dates: start: 19920101, end: 20020101
  3. CYCLOSPORINE [Suspect]
     Indication: IMMUNOSUPPRESSANT DRUG THERAPY
     Dates: start: 19920101, end: 20020101
  4. TACROLIMUS [Suspect]
     Indication: IMMUNOSUPPRESSANT DRUG THERAPY
     Dates: start: 20020101
  5. MYCOPHENOLIC ACID [Suspect]
     Indication: IMMUNOSUPPRESSANT DRUG THERAPY
     Dates: start: 20020101
  6. CLOBETASOL PROPIONATE [Suspect]
     Indication: SKIN LESION
     Route: 061
  7. METHYLPREDNISOLONE [Suspect]
     Indication: SKIN LESION
  8. DAPSONE [Suspect]
     Indication: SKIN LESION
     Dosage: 100 MG
  9. DAPSONE [Suspect]
     Indication: DERMATITIS BULLOUS
  10. DOXYCYCLINE [Suspect]
     Indication: DERMATITIS BULLOUS
  11. NIACINAMIDE [Suspect]
     Indication: DERMATITIS BULLOUS

REACTIONS (7)
  - COAGULOPATHY [None]
  - DEATH [None]
  - DISEASE RECURRENCE [None]
  - IGA NEPHROPATHY [None]
  - NEPHROTIC SYNDROME [None]
  - PEMPHIGOID [None]
  - SEPSIS [None]
